FAERS Safety Report 17386642 (Version 1)
Quarter: 2020Q1

REPORT INFORMATION
  Report Type: Spontaneous
  Country: EC (occurrence: EC)
  Receive Date: 20200206
  Receipt Date: 20200206
  Transmission Date: 20200409
  Serious: Yes (Other)
  Sender: FDA-Public Use
  Company Number: NVSC2020EC029063

PATIENT

DRUGS (1)
  1. CONTEPIL (LEVETIRACETAM) [Suspect]
     Active Substance: LEVETIRACETAM
     Indication: PRODUCT USED FOR UNKNOWN INDICATION
     Dosage: 1000 MG, BID
     Route: 065

REACTIONS (4)
  - Cardiac failure [Unknown]
  - Haematoma [Unknown]
  - Joint injury [Unknown]
  - Fall [Unknown]
